FAERS Safety Report 6706168-6 (Version None)
Quarter: 2010Q2

REPORT INFORMATION
  Report Type: 
  Country: None (occurrence: None)
  Receive Date: 20100503
  Receipt Date: 20100422
  Transmission Date: 20101027
  Serious: Yes (Hospitalization, Other)
  Sender: FDA-Public Use
  Company Number: JP-PFIZER INC-2010050277

PATIENT
  Age: 89 Year
  Sex: Male
  Weight: 57.8 kg

DRUGS (7)
  1. LIPITOR [Suspect]
     Indication: HYPERCHOLESTEROLAEMIA
     Dosage: 10 MG, UID/ 1X/DAY
     Route: 048
     Dates: start: 19980301, end: 20100407
  2. ASPIRIN [Suspect]
     Indication: CEREBRAL INFARCTION
     Dosage: 100 MG, 2X/DAY
     Route: 048
     Dates: start: 20030101, end: 20100407
  3. PLETAL [Suspect]
     Indication: CEREBRAL INFARCTION
     Dosage: 100 MG, 2X/DAY
     Route: 048
     Dates: start: 20030101, end: 20100407
  4. PANALDINE [Concomitant]
     Dosage: UNK
     Route: 048
  5. GLUFAST [Concomitant]
     Dosage: UNK
     Dates: start: 20060201, end: 20100407
  6. ACTOS [Concomitant]
     Dosage: UNK
     Dates: start: 20060101, end: 20100407
  7. GLUCOBAY [Concomitant]
     Dosage: UNK
     Dates: start: 20030101, end: 20100407

REACTIONS (1)
  - INTERSTITIAL LUNG DISEASE [None]
